FAERS Safety Report 11460411 (Version 2)
Quarter: 2015Q4

REPORT INFORMATION
  Report Type: Spontaneous
  Country: US (occurrence: US)
  Receive Date: 20150904
  Receipt Date: 20151218
  Transmission Date: 20160304
  Serious: Yes (Other)
  Sender: FDA-Public Use
  Company Number: US-BAYER-2015-412507

PATIENT
  Age: 45 Year
  Sex: Female

DRUGS (1)
  1. BETASERON [Suspect]
     Active Substance: INTERFERON BETA-1B
     Indication: MULTIPLE SCLEROSIS
     Dosage: 1 ML (0.25MG) EVERY OTHER DAY
     Route: 058

REACTIONS (4)
  - Balance disorder [None]
  - Fall [None]
  - Head injury [None]
  - Fall [Recovered/Resolved]

NARRATIVE: CASE EVENT DATE: 201511
